FAERS Safety Report 12064743 (Version 1)
Quarter: 2016Q1

REPORT INFORMATION
  Report Type: Spontaneous
  Country: US (occurrence: US)
  Receive Date: 20160210
  Receipt Date: 20160210
  Transmission Date: 20160526
  Serious: No
  Sender: FDA-Public Use
  Company Number: US-ALLERGAN-1308484US

PATIENT
  Age: 85 Year
  Sex: Female

DRUGS (1)
  1. BOTOX [Suspect]
     Active Substance: ONABOTULINUMTOXINA
     Indication: SALIVARY HYPERSECRETION
     Dosage: UNK, SINGLE
     Dates: start: 20120623, end: 20130623

REACTIONS (4)
  - Choking [Not Recovered/Not Resolved]
  - Drug ineffective [Unknown]
  - Saliva altered [Not Recovered/Not Resolved]
  - Off label use [Unknown]
